FAERS Safety Report 9491105 (Version 7)
Quarter: 2014Q4

REPORT INFORMATION
  Report Type: Report from Study
  Country: JP (occurrence: JP)
  Receive Date: 20130830
  Receipt Date: 20141121
  Transmission Date: 20150529
  Serious: Yes (Disabling)
  Sender: FDA-Public Use
  Company Number: JP-AMGEN-JPNSP2013061312

PATIENT
  Age: 83 Year
  Sex: Female
  Weight: 46 kg

DRUGS (17)
  1. DENOSUMAB [Suspect]
     Active Substance: DENOSUMAB
     Indication: METASTASES TO BONE
     Dosage: 120 MG, UNK
     Route: 058
     Dates: start: 20130604, end: 20130604
  2. AMLODIN [Concomitant]
     Active Substance: AMLODIPINE BESYLATE
     Dosage: 2.5 MG, QD
     Route: 065
  3. TS-1 [Concomitant]
     Active Substance: GIMERACIL\OTERACIL\TEGAFUR
     Dosage: UNKNOWN
     Route: 065
     Dates: start: 20130220, end: 20130514
  4. DENOTAS [Concomitant]
     Active Substance: CALCIUM CARBONATE\CHOLECALCIFEROL\MAGNESIUM CARBONATE
     Dosage: 2 DF, QD
     Route: 048
     Dates: start: 20130618, end: 20130715
  5. FLAVITAN [Concomitant]
     Active Substance: FLAVIN ADENINE DINUCLEOTIDE
     Dosage: 15 MG, QD
     Route: 048
     Dates: start: 20130423, end: 20130715
  6. AZUNOL                             /00317302/ [Concomitant]
     Dosage: UNKNOWN
     Route: 050
     Dates: start: 20130403
  7. CALCIUM LACTATE [Concomitant]
     Active Substance: CALCIUM LACTATE
     Dosage: 2 G, QD
     Route: 048
     Dates: start: 20130604, end: 20130617
  8. TAKEPRON [Concomitant]
     Active Substance: LANSOPRAZOLE
     Dosage: 15 MG, QD
     Route: 065
  9. HANGEKOBOKUTO [Concomitant]
     Dosage: 7.5 G, QD
     Route: 048
     Dates: start: 20130423, end: 20130715
  10. NEXAVAR [Concomitant]
     Active Substance: SORAFENIB
     Dosage: UNKNOWN
     Route: 065
     Dates: start: 20130220
  11. OXYCONTIN [Concomitant]
     Active Substance: OXYCODONE HYDROCHLORIDE
     Dosage: 70 MG, QD
     Route: 048
     Dates: start: 20130111
  12. URSO [Concomitant]
     Active Substance: URSODIOL
     Dosage: 300 MG, QD
     Route: 048
  13. REBAMIPIDE [Concomitant]
     Active Substance: REBAMIPIDE
     Dosage: UNK
     Route: 065
  14. ALFAROL [Concomitant]
     Active Substance: ALFACALCIDOL
     Dosage: 0.5 MUG, QD
     Route: 048
     Dates: start: 20130604, end: 20130617
  15. SALCOAT [Concomitant]
     Active Substance: BECLOMETHASONE DIPROPIONATE
     Dosage: UNKNOWN
     Route: 050
     Dates: start: 20130403
  16. MAGNESIUM OXIDE. [Concomitant]
     Active Substance: MAGNESIUM OXIDE
     Dosage: UNK
     Route: 065
  17. PURSENNID [Concomitant]
     Active Substance: SENNOSIDES A AND B
     Dosage: UNK
     Route: 065

REACTIONS (2)
  - Osteomyelitis [Not Recovered/Not Resolved]
  - Osteonecrosis of jaw [Recovering/Resolving]

NARRATIVE: CASE EVENT DATE: 20130611
